FAERS Safety Report 24221353 (Version 1)
Quarter: 2024Q3

REPORT INFORMATION
  Report Type: Spontaneous
  Country: NO (occurrence: NO)
  Receive Date: 20240819
  Receipt Date: 20240819
  Transmission Date: 20241017
  Serious: No
  Sender: SANDOZ
  Company Number: NO-SANDOZ-SDZ2024NO072711

PATIENT

DRUGS (1)
  1. SOMATROPIN [Suspect]
     Active Substance: SOMATROPIN
     Indication: Growth hormone deficiency
     Dosage: UNK
     Route: 065

REACTIONS (3)
  - Incorrect dose administered [Unknown]
  - Wrong technique in device usage process [Unknown]
  - Needle issue [Unknown]
